FAERS Safety Report 10573321 (Version 2)
Quarter: 2016Q2

REPORT INFORMATION
  Report Type: Spontaneous
  Country: US (occurrence: US)
  Receive Date: 20141110
  Receipt Date: 20160418
  Transmission Date: 20160815
  Serious: Yes (Other)
  Sender: FDA-Public Use
  Company Number: US-BAYER-2014-164641

PATIENT
  Age: 24 Year
  Sex: Female

DRUGS (1)
  1. MIRENA [Suspect]
     Active Substance: LEVONORGESTREL
     Indication: MENORRHAGIA
     Dosage: 20 MCG/24HR, CONT
     Route: 015
     Dates: start: 201103, end: 201311

REACTIONS (6)
  - Device difficult to use [None]
  - Device failure [None]
  - Injury [None]
  - Embedded device [None]
  - Pain [None]
  - Device issue [None]

NARRATIVE: CASE EVENT DATE: 201103
